FAERS Safety Report 15786318 (Version 1)
Quarter: 2019Q1

REPORT INFORMATION
  Report Type: Spontaneous
  Country: US (occurrence: US)
  Receive Date: 20190103
  Receipt Date: 20190103
  Transmission Date: 20190417
  Serious: No
  Sender: FDA-Public Use
  Company Number: US-ARRAY-2018-04803

PATIENT

DRUGS (3)
  1. BRAFTOVI [Suspect]
     Active Substance: ENCORAFENIB
     Indication: CONJUNCTIVAL MELANOMA
     Dosage: 450 MG, UNK
     Dates: start: 201807
  2. MEKTOVI [Suspect]
     Active Substance: BINIMETINIB
     Indication: CONJUNCTIVAL MELANOMA
     Dosage: 450 MG, UNK
     Dates: start: 201807
  3. VITAMINS NOS [Concomitant]
     Active Substance: VITAMINS
     Indication: SUPPLEMENTATION THERAPY

REACTIONS (2)
  - Blood glucose increased [Recovered/Resolved]
  - Off label use [Unknown]
